FAERS Safety Report 19439202 (Version 1)
Quarter: 2021Q2

REPORT INFORMATION
  Report Type: Report from Study
  Country: DE (occurrence: DE)
  Receive Date: 20210619
  Receipt Date: 20210619
  Transmission Date: 20210717
  Serious: Yes (Life-Threatening)
  Sender: FDA-Public Use
  Company Number: DE-ACCORD-228830

PATIENT
  Age: 34 Year
  Sex: Male

DRUGS (6)
  1. PREDNISONE/PREDNISONE ACETATE [Suspect]
     Active Substance: PREDNISONE ACETATE
     Indication: DIFFUSE LARGE B-CELL LYMPHOMA
     Dosage: 100 MG ABS. I.V, DAYS 1?5
  2. DOXORUBICIN [Suspect]
     Active Substance: DOXORUBICIN
     Indication: DIFFUSE LARGE B-CELL LYMPHOMA
     Route: 042
  3. CYCLOPHOSPHAMIDE/CYCLOPHOSPHAMIDE MONOHYDRATE [Suspect]
     Active Substance: CYCLOPHOSPHAMIDE
     Indication: DIFFUSE LARGE B-CELL LYMPHOMA
     Dosage: 750 MG/M2, DAY 1
     Route: 042
  4. METHOTREXATE. [Suspect]
     Active Substance: METHOTREXATE
     Indication: DIFFUSE LARGE B-CELL LYMPHOMA
  5. RITUXIMAB. [Suspect]
     Active Substance: RITUXIMAB
     Indication: DIFFUSE LARGE B-CELL LYMPHOMA
     Dosage: 375 MG/M2 I.V. OR 1400 MG S.C, DAY 1
  6. VINCRISTINE [Suspect]
     Active Substance: VINCRISTINE
     Indication: DIFFUSE LARGE B-CELL LYMPHOMA
     Dosage: 2 / 1 MG ABS. I.V

REACTIONS (1)
  - Haematotoxicity [Unknown]
